FAERS Safety Report 23466481 (Version 2)
Quarter: 2025Q2

REPORT INFORMATION
  Report Type: Spontaneous
  Country: US (occurrence: US)
  Receive Date: 20240201
  Receipt Date: 20250504
  Transmission Date: 20250716
  Serious: Yes (Other)
  Sender: SANOFI AVENTIS
  Company Number: US-SA-SAC20240130001293

PATIENT
  Sex: Female
  Weight: 67 kg

DRUGS (25)
  1. DUPIXENT [Suspect]
     Active Substance: DUPILUMAB
     Indication: Asthma
     Dosage: 300 MG, QOW
     Route: 058
     Dates: start: 202203
  2. DUPIXENT [Suspect]
     Active Substance: DUPILUMAB
     Indication: Chronic obstructive pulmonary disease
  3. ATORVASTATIN CALCIUM [Concomitant]
     Active Substance: ATORVASTATIN CALCIUM
  4. BREZTRI [Concomitant]
     Active Substance: BUDESONIDE\FORMOTEROL\GLYCOPYRROLATE
  5. LINZESS [Concomitant]
     Active Substance: LINACLOTIDE
  6. MIRALAX [Concomitant]
     Active Substance: POLYETHYLENE GLYCOL 3350
  7. CITRUCEL [Concomitant]
     Active Substance: METHYLCELLULOSE (4000 CPS)
  8. VENTOLIN HFA [Concomitant]
     Active Substance: ALBUTEROL SULFATE
  9. PYRIDOXINE [Concomitant]
     Active Substance: PYRIDOXINE
  10. ALBUTEROL\IPRATROPIUM [Concomitant]
     Active Substance: ALBUTEROL\IPRATROPIUM
  11. DICYCLOMINE HYDROCHLORIDE [Concomitant]
     Active Substance: DICYCLOMINE HYDROCHLORIDE
  12. VITAMIN E [Concomitant]
     Active Substance: .ALPHA.-TOCOPHEROL
  13. ZINC [Concomitant]
     Active Substance: ZINC
  14. BEANO [Concomitant]
     Active Substance: ASPERGILLUS NIGER .ALPHA.-GALACTOSIDASE
  15. LACTULOSE [Concomitant]
     Active Substance: LACTULOSE
  16. SUCRALFATE [Concomitant]
     Active Substance: SUCRALFATE
  17. ACETAMINOPHEN\HYDROCODONE [Concomitant]
     Active Substance: ACETAMINOPHEN\HYDROCODONE
  18. VITAMINS [Concomitant]
     Active Substance: VITAMINS
  19. PEPPERMINT OIL [Concomitant]
     Active Substance: PEPPERMINT OIL
  20. BIDENS PILOSA [Concomitant]
  21. NEXIUM I.V. [Concomitant]
     Active Substance: ESOMEPRAZOLE SODIUM
  22. VITAMIN C [Concomitant]
     Active Substance: ASCORBIC ACID
  23. ACETAMINOPHEN\OXYCODONE HYDROCHLORIDE [Concomitant]
     Active Substance: ACETAMINOPHEN\OXYCODONE HYDROCHLORIDE
  24. DULCOLAX (BISACODYL) [Concomitant]
     Active Substance: BISACODYL
  25. USNEA SPP. [Concomitant]
     Dosage: UNK UNK, QD (1/2 DROPPERFUL)

REACTIONS (5)
  - Pneumonia fungal [Recovered/Resolved]
  - Helminthic infection [Recovered/Resolved]
  - Nail operation [Recovered/Resolved]
  - Chronic obstructive pulmonary disease [Unknown]
  - Asthma [Unknown]

NARRATIVE: CASE EVENT DATE: 20230101
